FAERS Safety Report 9379064 (Version 2)
Quarter: 2013Q3

REPORT INFORMATION
  Report Type: Spontaneous
  Country: US (occurrence: US)
  Receive Date: 20130702
  Receipt Date: 20130802
  Transmission Date: 20140515
  Serious: Yes (Hospitalization)
  Sender: FDA-Public Use
  Company Number: PHEH2013US013886

PATIENT
  Sex: Female

DRUGS (18)
  1. FORADIL [Suspect]
     Indication: CHRONIC OBSTRUCTIVE PULMONARY DISEASE
     Dosage: ONE PUFF TWICE A DAY
     Dates: start: 20121003
  2. ASMANEX [Concomitant]
     Dosage: UNK
  3. SPIRIVA [Concomitant]
     Dosage: UNK
  4. VENTOLINE [Concomitant]
     Dosage: UNK
  5. PRO-AIR [Concomitant]
     Dosage: UNK
  6. CARDIZEM [Concomitant]
     Dosage: UNK
  7. DIOVEN [Concomitant]
     Dosage: UNK
  8. COREG [Concomitant]
     Dosage: UNK
  9. VITAMIN K [Concomitant]
     Dosage: UNK
  10. LEVOCETIRIZIN AL [Concomitant]
     Dosage: UNK
  11. SINGULAIR [Concomitant]
     Dosage: UNK
  12. NEXIUM 1-2-3 [Concomitant]
     Dosage: UNK
  13. KLOR-CON [Concomitant]
     Dosage: UNK
  14. LASIX [Concomitant]
     Dosage: UNK
  15. MULTIVITAMIN//VITAMINS NOS [Concomitant]
     Dosage: UNK
  16. NASONEX [Concomitant]
     Dosage: UNK
  17. CALCITONIN SALMON [Concomitant]
     Dosage: UNK
  18. DEPAKOTE [Concomitant]
     Dosage: UNK

REACTIONS (3)
  - Pneumonia [Recovering/Resolving]
  - Dyspnoea [Recovering/Resolving]
  - Product blister packaging issue [Recovering/Resolving]
